FAERS Safety Report 4829633-5 (Version None)
Quarter: 2005Q4

REPORT INFORMATION
  Report Type: 
  Country: None (occurrence: None)
  Receive Date: 20051027
  Receipt Date: 20050622
  Transmission Date: 20060501
  Serious: Yes (Hospitalization, Other)
  Sender: FDA-Public Use
  Company Number: HQWYE685224JUN05

PATIENT
  Age: 57 Year
  Sex: Female
  Weight: 108.96 kg

DRUGS (1)
  1. PREMARIN [Suspect]
     Indication: HOT FLUSH
     Dosage: 0.625 MG 1X PER 1 DAY
     Dates: start: 20011101, end: 20050501

REACTIONS (1)
  - BREAST CANCER [None]
